FAERS Safety Report 7333500-5 (Version None)
Quarter: 2011Q1

REPORT INFORMATION
  Report Type: 
  Country: None (occurrence: None)
  Receive Date: 20110304
  Receipt Date: 20110223
  Transmission Date: 20110831
  Serious: Yes (Other)
  Sender: FDA-Public Use
  Company Number: JP-WATSON-2011-02412

PATIENT
  Age: 62 Year
  Sex: Male

DRUGS (1)
  1. ISONIAZID [Suspect]
     Indication: ANTIBIOTIC PROPHYLAXIS
     Dosage: 300 MG, DAILY
     Route: 065

REACTIONS (1)
  - PERICARDITIS [None]
